FAERS Safety Report 5871923-1 (Version None)
Quarter: 2008Q3

REPORT INFORMATION
  Report Type: 
  Country: None (occurrence: None)
  Receive Date: 20080905
  Receipt Date: 20080826
  Transmission Date: 20090109
  Serious: Yes (Other)
  Sender: FDA-Public Use
  Company Number: BR-JNJFOC-20080806399

PATIENT
  Sex: Female
  Weight: 64 kg

DRUGS (6)
  1. ACETAMINOPHEN W/ CODEINE [Suspect]
     Indication: PELVIC PAIN
     Dosage: AFTER LUNCH
     Route: 048
  2. PROPRANOLOL [Concomitant]
     Indication: BLOOD PRESSURE
     Dosage: 1 IN MORNING AND 1 AT NIGHT
     Route: 048
  3. HYDROCHLOROTHIAZIDE [Concomitant]
     Indication: BLOOD PRESSURE
     Dosage: 1 IN MORNING AND 1 AT NIGHT
     Route: 048
  4. RANITIDINE [Concomitant]
     Indication: GASTRITIS
     Dosage: 1 IN MORNING, 1 IN AFTERNOON AND 1 AT NIGHT
     Route: 048
  5. HIDANTAL [Concomitant]
     Indication: ECLAMPSIA
     Dosage: AT NIGHT
     Route: 048
  6. BROMAZEPAM [Concomitant]
     Indication: SEDATIVE THERAPY
     Dosage: IN THE MORNING
     Route: 048

REACTIONS (8)
  - BLOOD PRESSURE INCREASED [None]
  - DIZZINESS [None]
  - ERYTHEMA [None]
  - HEADACHE [None]
  - NAUSEA [None]
  - PRURITUS [None]
  - PRURITUS GENERALISED [None]
  - RASH PAPULAR [None]
